FAERS Safety Report 16254674 (Version 4)
Quarter: 2020Q3

REPORT INFORMATION
  Report Type: Spontaneous
  Country: ES (occurrence: ES)
  Receive Date: 20190430
  Receipt Date: 20200730
  Transmission Date: 20201102
  Serious: Yes (Hospitalization, Other)
  Sender: FDA-Public Use
  Company Number: ES-AUROBINDO-AUR-APL-2019-023253

PATIENT
  Age: 86 Year
  Sex: Male

DRUGS (1)
  1. OLMESARTAN 40 MG [Suspect]
     Active Substance: OLMESARTAN
     Indication: HYPERTENSION
     Dosage: 40 MILLIGRAM, ONCE A DAY
     Route: 065

REACTIONS (8)
  - Diarrhoea [Recovered/Resolved]
  - Intestinal ulcer [Recovering/Resolving]
  - Colitis [Recovering/Resolving]
  - Metabolic acidosis [Recovered/Resolved]
  - Gastrointestinal disorder [Recovered/Resolved]
  - Enteritis [Recovering/Resolving]
  - Prerenal failure [Recovered/Resolved]
  - Colitis ulcerative [Recovered/Resolved]
